FAERS Safety Report 10076918 (Version 3)
Quarter: 2014Q2

REPORT INFORMATION
  Report Type: Spontaneous
  Country: JP (occurrence: JP)
  Receive Date: 20140414
  Receipt Date: 20140429
  Transmission Date: 20141212
  Serious: Yes (Hospitalization)
  Sender: FDA-Public Use
  Company Number: JP-B.I. PHARMACEUTICALS,INC./RIDGEFIELD-2014-BI-16800GD

PATIENT
  Age: 87 Year
  Sex: Female

DRUGS (4)
  1. MICARDIS PLUS [Suspect]
     Indication: PRODUCT USED FOR UNKNOWN INDICATION
     Route: 048
  2. BAYASPIRIN [Suspect]
     Indication: PRODUCT USED FOR UNKNOWN INDICATION
     Route: 065
  3. RIZE [Suspect]
     Indication: PRODUCT USED FOR UNKNOWN INDICATION
     Route: 065
  4. TAMBOCOR [Suspect]
     Indication: PRODUCT USED FOR UNKNOWN INDICATION
     Route: 065

REACTIONS (1)
  - Hypoglycaemia [Recovered/Resolved]
